FAERS Safety Report 8375419-7 (Version None)
Quarter: 2012Q2

REPORT INFORMATION
  Report Type: 
  Country: None (occurrence: None)
  Receive Date: 20120522
  Receipt Date: 20120510
  Transmission Date: 20120825
  Serious: No
  Sender: FDA-Public Use
  Company Number: US-BIOGENIDEC-2012BI017230

PATIENT
  Sex: Female

DRUGS (2)
  1. TYSABRI [Suspect]
     Indication: MULTIPLE SCLEROSIS
     Route: 042
     Dates: start: 20050122
  2. TYSABRI [Suspect]
     Route: 042
     Dates: start: 20120402

REACTIONS (4)
  - MUSCLE SPASMS [None]
  - CONFUSIONAL STATE [None]
  - PAIN [None]
  - FEELING COLD [None]
